FAERS Safety Report 9856205 (Version 1)
Quarter: 2014Q1

REPORT INFORMATION
  Report Type: Report from Study
  Country: US (occurrence: US)
  Receive Date: 20140130
  Receipt Date: 20140130
  Transmission Date: 20141002
  Serious: Yes (Other)
  Sender: FDA-Public Use
  Company Number: US-ROCHE-1320152

PATIENT
  Sex: Male

DRUGS (15)
  1. AVASTIN [Suspect]
     Indication: NEUROFIBROMATOSIS
     Dosage: VOLUME INFUSED WITH 139 ML.
     Route: 042
     Dates: start: 20120425
  2. AVASTIN [Suspect]
     Dosage: VOLUME INFUSED WITH 141 ML.
     Route: 042
     Dates: start: 20120509
  3. AVASTIN [Suspect]
     Dosage: VOLUME INFUSED WITH 250 ML.
     Route: 042
     Dates: start: 20120523
  4. AVASTIN [Suspect]
     Dosage: VOLUME INFUSED WITH 130 ML.
     Route: 042
     Dates: start: 20120606
  5. AVASTIN [Suspect]
     Dosage: VOLUME INFUSED WITH 121 ML.
     Route: 042
     Dates: start: 20120620
  6. AVASTIN [Suspect]
     Dosage: VOLUME INFUSED WITH 141 ML.
     Route: 042
     Dates: start: 20120706
  7. AVASTIN [Suspect]
     Dosage: VOLUME INFUSED WITH 172 ML.
     Route: 042
     Dates: start: 20120718
  8. AVASTIN [Suspect]
     Dosage: VOLUME INFUSED WITH 100 ML.
     Route: 042
     Dates: start: 20120801
  9. AVASTIN [Suspect]
     Dosage: VOLUME INFUSED WITH 140 ML.
     Route: 042
     Dates: start: 20120815
  10. AVASTIN [Suspect]
     Dosage: VOLUME INFUSED WITH 142 ML.
     Route: 042
     Dates: start: 20120827
  11. AVASTIN [Suspect]
     Dosage: VOLUME INFUSED WITH 141 ML.
     Route: 042
     Dates: start: 20120913
  12. AVASTIN [Suspect]
     Dosage: VOLUME INFUSED WITH 141 ML.
     Route: 042
     Dates: start: 20120926
  13. AVASTIN [Suspect]
     Dosage: VOLUME INFUSED WITH 122 ML.
     Route: 042
     Dates: start: 20121010
  14. TYLENOL [Concomitant]
     Dosage: PRN
     Route: 065
  15. AMLODIPINE [Concomitant]
     Route: 065

REACTIONS (22)
  - Eye irritation [Unknown]
  - Blindness unilateral [Unknown]
  - Depression [Recovering/Resolving]
  - Erectile dysfunction [Unknown]
  - Groin pain [Unknown]
  - Deafness [Recovered/Resolved]
  - Off label use [Unknown]
  - Musculoskeletal stiffness [Unknown]
  - Dry mouth [Unknown]
  - Back pain [Unknown]
  - Paraesthesia [Unknown]
  - Asthenia [Unknown]
  - Peroneal nerve palsy [Unknown]
  - Strabismus [Unknown]
  - Facial paresis [Unknown]
  - Tongue paralysis [Unknown]
  - Tongue atrophy [Unknown]
  - Atrophy [Unknown]
  - Muscular weakness [Unknown]
  - Atrophy [Unknown]
  - Asthenia [Unknown]
  - Hypermobility syndrome [Unknown]
